FAERS Safety Report 5742449-0 (Version None)
Quarter: 2008Q2

REPORT INFORMATION
  Report Type: 
  Country: None (occurrence: None)
  Receive Date: 20080515
  Receipt Date: 20080507
  Transmission Date: 20081010
  Serious: Yes (Life-Threatening, Hospitalization)
  Sender: FDA-Public Use
  Company Number: OMPQ-NO-0804S-0285

PATIENT
  Age: 68 Year
  Sex: Male

DRUGS (2)
  1. OMNIPAQUE 140 [Suspect]
     Indication: PULMONARY EMBOLISM
     Dosage: 120 ML, SINGLE DOSE, I.V.; 40 ML, SINGLE DOSE, I.V.
     Route: 042
     Dates: start: 20080421, end: 20080421
  2. OMNIPAQUE 140 [Suspect]
     Indication: PULMONARY EMBOLISM
     Dosage: 120 ML, SINGLE DOSE, I.V.; 40 ML, SINGLE DOSE, I.V.
     Route: 042
     Dates: start: 20080421, end: 20080421

REACTIONS (5)
  - BRONCHOSTENOSIS [None]
  - DEPRESSED LEVEL OF CONSCIOUSNESS [None]
  - DYSPNOEA [None]
  - RESPIRATORY ACIDOSIS [None]
  - TRACHEAL OBSTRUCTION [None]
